FAERS Safety Report 17420145 (Version 1)
Quarter: 2020Q1

REPORT INFORMATION
  Report Type: Spontaneous
  Country: US (occurrence: US)
  Receive Date: 20200214
  Receipt Date: 20200214
  Transmission Date: 20200409
  Serious: No
  Sender: FDA-Public Use
  Company Number: NVSC2020US016999

PATIENT
  Sex: Male
  Weight: 81.6 kg

DRUGS (2)
  1. NETSPOT [Suspect]
     Active Substance: DOTATATE GALLIUM GA-68
     Dosage: UNK
     Route: 042
     Dates: start: 20200115
  2. NETSPOT [Suspect]
     Active Substance: DOTATATE GALLIUM GA-68
     Indication: PHAEOCHROMOCYTOMA
     Dosage: 5.9 MCI
     Route: 042

REACTIONS (1)
  - Nausea [Recovered/Resolved]

NARRATIVE: CASE EVENT DATE: 20200115
